FAERS Safety Report 8359333-9 (Version None)
Quarter: 2012Q2

REPORT INFORMATION
  Report Type: 
  Country: None (occurrence: None)
  Receive Date: 20120515
  Receipt Date: 20120510
  Transmission Date: 20120825
  Serious: No
  Sender: FDA-Public Use
  Company Number: US-PFIZER INC-2012108225

PATIENT
  Sex: Female
  Weight: 77.098 kg

DRUGS (4)
  1. IBUPROFEN (ADVIL) [Suspect]
     Dosage: 1200 MG, IN A DAY
     Route: 048
     Dates: start: 20120101, end: 20120501
  2. IBUPROFEN (ADVIL) [Suspect]
     Indication: ARTHRITIS
     Dosage: 200 MG, 3X/DAY
     Route: 048
     Dates: start: 20120401, end: 20120101
  3. IBUPROFEN (ADVIL) [Suspect]
     Dosage: 600 MG, AS NEEDED
     Route: 048
     Dates: start: 20120401, end: 20120501
  4. TYLENOL (CAPLET) [Concomitant]
     Indication: ARTHRITIS
     Dosage: UNK

REACTIONS (6)
  - PRURITUS [None]
  - DRUG ADMINISTRATION ERROR [None]
  - ARTHRITIS [None]
  - JOINT RANGE OF MOTION DECREASED [None]
  - PAIN [None]
  - JOINT STIFFNESS [None]
